FAERS Safety Report 16409159 (Version 1)
Quarter: 2019Q2

REPORT INFORMATION
  Report Type: Spontaneous
  Country: CI (occurrence: CI)
  Receive Date: 20190610
  Receipt Date: 20190610
  Transmission Date: 20190711
  Serious: Yes (Death, Other)
  Sender: FDA-Public Use
  Company Number: PHHY2019CI131943

PATIENT
  Sex: Female

DRUGS (1)
  1. GLIVEC [Suspect]
     Active Substance: IMATINIB MESYLATE
     Indication: CHRONIC MYELOID LEUKAEMIA
     Dosage: 6 DF, UNK (6 X 100MG TABLETS)
     Route: 065

REACTIONS (5)
  - Transformation to acute myeloid leukaemia [Fatal]
  - Haemorrhagic disorder [Fatal]
  - Remission not achieved [Fatal]
  - Treatment noncompliance [Fatal]
  - Anaemia [Fatal]
